FAERS Safety Report 5324519-4 (Version None)
Quarter: 2007Q2

REPORT INFORMATION
  Report Type: 
  Country: None (occurrence: None)
  Receive Date: 20070514
  Receipt Date: 20070502
  Transmission Date: 20071010
  Serious: Yes (Hospitalization, Other)
  Sender: FDA-Public Use
  Company Number: US-PFIZER INC-2007036064

PATIENT
  Sex: Male
  Weight: 68.181 kg

DRUGS (1)
  1. DILANTIN [Suspect]
     Indication: CONVULSION PROPHYLAXIS

REACTIONS (2)
  - DYSPHAGIA [None]
  - HAEMORRHAGE INTRACRANIAL [None]
